FAERS Safety Report 19769904 (Version 1)
Quarter: 2021Q3

REPORT INFORMATION
  Report Type: Spontaneous
  Country: JP (occurrence: JP)
  Receive Date: 20210831
  Receipt Date: 20210831
  Transmission Date: 20211014
  Serious: Yes (Death)
  Sender: FDA-Public Use
  Company Number: JP-BAXTER-2021BAX027028

PATIENT
  Age: 9 Decade
  Sex: Female

DRUGS (2)
  1. EXTRANEAL [Suspect]
     Active Substance: CALCIUM CHLORIDE\ICODEXTRIN\MAGNESIUM CHLORIDE\SODIUM CHLORIDE\SODIUM LACTATE
     Indication: NEPHROSCLEROSIS
     Dosage: ONCE DAILY
     Route: 033
     Dates: start: 202008, end: 20210805
  2. REGUNEAL LCA [Suspect]
     Active Substance: CALCIUM CHLORIDE\DEXTROSE MONOHYDRATE\HYDROCHLORIC ACID\MAGNESIUM CHLORIDE\SODIUM BICARBONATE\SODIUM CHLORIDE\SODIUM HYDROXIDE\SODIUM LACTATE
     Indication: NEPHROSCLEROSIS
     Dosage: THREE TIMES DAILY
     Route: 033
     Dates: start: 202104, end: 20210805

REACTIONS (1)
  - Marasmus [Fatal]
